FAERS Safety Report 6158797-9 (Version None)
Quarter: 2009Q2

REPORT INFORMATION
  Report Type: 
  Country: None (occurrence: None)
  Receive Date: 20090417
  Receipt Date: 20090415
  Transmission Date: 20091009
  Serious: Yes (Life-Threatening, Hospitalization)
  Sender: FDA-Public Use
  Company Number: DE-JNJFOC-20090402684

PATIENT
  Sex: Female

DRUGS (2)
  1. RISPERDAL [Suspect]
     Indication: AGGRESSION
     Route: 048
  2. RISPERDAL [Suspect]
     Indication: MENTAL RETARDATION
     Route: 048

REACTIONS (1)
  - THROMBOCYTOPENIA [None]
